FAERS Safety Report 18582635 (Version 1)
Quarter: 2020Q4

REPORT INFORMATION
  Report Type: Report from Study
  Country: DE (occurrence: DE)
  Receive Date: 20201205
  Receipt Date: 20201205
  Transmission Date: 20210114
  Serious: Yes (Hospitalization, Other)
  Sender: FDA-Public Use
  Company Number: DE-ACCORD-209906

PATIENT
  Age: 81 Year
  Sex: Female
  Weight: 75 kg

DRUGS (13)
  1. NOVALGIN [Concomitant]
     Dosage: NOVALGIN 30 TROPFEN 1-1-1
  2. TIMOLOL. [Concomitant]
     Active Substance: TIMOLOL
     Dosage: BDS. 1-0-1
  3. LAVENTAIR ELLIPTA [Concomitant]
     Active Substance: UMECLIDINIUM BROMIDE\VILANTEROL TRIFENATATE
     Dosage: LAVENTAIR ELLIPTA 1-0-0
  4. AMLODIPINE [Concomitant]
     Active Substance: AMLODIPINE BESYLATE
     Dosage: AMLODIPIN 5MG
  5. PREGABALIN. [Concomitant]
     Active Substance: PREGABALIN
     Dosage: PREGABALIN 50MG 2-0-2
  6. APIXABAN [Suspect]
     Active Substance: APIXABAN
     Indication: PRODUCT USED FOR UNKNOWN INDICATION
     Dates: start: 20200508
  7. METHADONE [Concomitant]
     Active Substance: METHADONE HYDROCHLORIDE
     Dosage: L-POLAMIDON 100MG 1-1-1
  8. SIMVASTATIN. [Concomitant]
     Active Substance: SIMVASTATIN
     Dosage: SIMVASTATIN 20MG 0-0-1
  9. MOXONIDINE [Concomitant]
     Active Substance: MOXONIDINE
     Dosage: MOXONIDIN 0,3MG 1-0-0
  10. PANTOPRAZOLE [Concomitant]
     Active Substance: PANTOPRAZOLE
     Dosage: PANTOPRAZOL 40MG
  11. ASPIRIN. [Suspect]
     Active Substance: ASPIRIN
     Indication: PRODUCT USED FOR UNKNOWN INDICATION
     Dates: start: 20200508
  12. CARVEDILOL/CARVEDILOL HYDROCHLODRIDE [Concomitant]
     Active Substance: CARVEDILOL HYDROCHLORIDE
     Dosage: CARVEDILOL 25MG 1-0-1
  13. RAMIPRIL. [Concomitant]
     Active Substance: RAMIPRIL
     Dosage: RAMIPRIL 10MG 1-0-0

REACTIONS (3)
  - Gastrointestinal haemorrhage [Not Recovered/Not Resolved]
  - Gastrointestinal angiodysplasia [Unknown]
  - Jejunal perforation [Recovered/Resolved]

NARRATIVE: CASE EVENT DATE: 20200515
